FAERS Safety Report 9231911 (Version 1)
Quarter: 2013Q2

REPORT INFORMATION
  Report Type: Spontaneous
  Country: US (occurrence: US)
  Receive Date: 20130415
  Receipt Date: 20130415
  Transmission Date: 20140414
  Serious: Yes (Hospitalization)
  Sender: FDA-Public Use
  Company Number: US-BAYER-2013-047094

PATIENT
  Age: 40 Year
  Sex: Male

DRUGS (6)
  1. ACETYLSALICYLIC ACID [Suspect]
     Indication: MONOPLEGIA
  2. ACETYLSALICYLIC ACID [Suspect]
     Indication: CEREBROVASCULAR ACCIDENT
  3. HEPARIN [Suspect]
     Indication: MONOPLEGIA
     Route: 042
  4. HEPARIN [Suspect]
     Indication: CEREBROVASCULAR ACCIDENT
  5. MINOCYCLINE [Concomitant]
     Indication: MONOPLEGIA
     Dosage: UNK
  6. MINOCYCLINE [Concomitant]
     Indication: CEREBROVASCULAR ACCIDENT

REACTIONS (1)
  - Haemothorax [None]
